FAERS Safety Report 8612847-6 (Version None)
Quarter: 2012Q3

REPORT INFORMATION
  Report Type: 
  Country: None (occurrence: None)
  Receive Date: 20120822
  Receipt Date: 20120216
  Transmission Date: 20120928
  Serious: No
  Sender: FDA-Public Use
  Company Number: US-ASTRAZENECA-2011SE24152

PATIENT
  Age: 53 Year
  Sex: Male

DRUGS (1)
  1. SYMBICORT [Suspect]
     Dosage: 160/4.5 MCG, DAILY
     Route: 055

REACTIONS (6)
  - RESPIRATORY DISORDER [None]
  - CHRONIC OBSTRUCTIVE PULMONARY DISEASE [None]
  - INSOMNIA [None]
  - DYSPNOEA [None]
  - DRUG DOSE OMISSION [None]
  - ADJUSTMENT DISORDER WITH DEPRESSED MOOD [None]
